FAERS Safety Report 8494220-7 (Version None)
Quarter: 2012Q3

REPORT INFORMATION
  Report Type: 
  Country: None (occurrence: None)
  Receive Date: 20120709
  Receipt Date: 20120705
  Transmission Date: 20120928
  Serious: Yes (Death, Other)
  Sender: FDA-Public Use
  Company Number: PHHY2011CA74230

PATIENT
  Sex: Female

DRUGS (10)
  1. ADALAT [Concomitant]
     Dosage: 30 MG, UNK
  2. SYNTHROID [Concomitant]
     Dosage: 0.05 MG, UNK
  3. OXYCODONE HCL [Concomitant]
  4. FENTANYL-100 [Concomitant]
  5. ATIVAN [Concomitant]
     Dosage: 1 MG, UNK
  6. ACETABULOL [Concomitant]
     Dosage: 100 MG, BID
  7. CITALOPRAM HYDROBROMIDE [Concomitant]
  8. ZOLEDRONOC ACID [Suspect]
     Indication: OSTEOPOROSIS
     Dosage: UNK UKN, UNK
     Route: 042
     Dates: start: 20100922
  9. ZOLEDRONOC ACID [Suspect]
     Dosage: UNK UKN, UNK
     Route: 042
     Dates: start: 20110926
  10. PANTOPRAZOLE SODIUM [Concomitant]

REACTIONS (6)
  - PELVIC PAIN [None]
  - NEOPLASM PROGRESSION [None]
  - BONE NEOPLASM MALIGNANT [None]
  - GAIT DISTURBANCE [None]
  - LYMPHOMA [None]
  - ARTHRALGIA [None]
